FAERS Safety Report 25472976 (Version 5)
Quarter: 2025Q3

REPORT INFORMATION
  Report Type: Report from Study
  Country: US (occurrence: US)
  Receive Date: 20250624
  Receipt Date: 20250716
  Transmission Date: 20251021
  Serious: Yes (Hospitalization, Other)
  Sender: ABBVIE
  Company Number: US-ABBVIE-6152206

PATIENT
  Sex: Male
  Weight: 72 kg

DRUGS (3)
  1. HUMIRA [Suspect]
     Active Substance: ADALIMUMAB
     Indication: Rheumatoid arthritis
     Route: 058
     Dates: start: 2018, end: 2022
  2. IBUPROFEN [Concomitant]
     Active Substance: IBUPROFEN
     Indication: Arthralgia
  3. METHOTREXATE [Concomitant]
     Active Substance: METHOTREXATE
     Indication: Product used for unknown indication

REACTIONS (36)
  - Blindness [Recovered/Resolved]
  - Eye injury [Not Recovered/Not Resolved]
  - Pain [Recovered/Resolved]
  - Eye pain [Recovered/Resolved]
  - Loss of consciousness [Recovered/Resolved]
  - Ocular discomfort [Unknown]
  - Injury [Not Recovered/Not Resolved]
  - Vision blurred [Not Recovered/Not Resolved]
  - Visual impairment [Not Recovered/Not Resolved]
  - Spondyloarthropathy [Unknown]
  - Spinal pain [Unknown]
  - Arthralgia [Unknown]
  - Uveitis [Unknown]
  - Arthritis [Unknown]
  - Muscle disorder [Unknown]
  - Myalgia [Unknown]
  - Injection site discharge [Unknown]
  - Diarrhoea [Unknown]
  - Liver function test increased [Unknown]
  - Blood potassium decreased [Unknown]
  - Gout [Unknown]
  - Joint lock [Unknown]
  - Endophthalmitis [Unknown]
  - HLA-B*27 positive [Unknown]
  - Peripheral swelling [Unknown]
  - Musculoskeletal stiffness [Unknown]
  - Claudication of jaw muscles [Unknown]
  - Epistaxis [Unknown]
  - Pain in extremity [Unknown]
  - Synovitis [Unknown]
  - Joint range of motion decreased [Unknown]
  - Loss of personal independence in daily activities [Unknown]
  - Impaired quality of life [Unknown]
  - General physical health deterioration [Unknown]
  - Emotional distress [Unknown]
  - Psychological trauma [Unknown]
